FAERS Safety Report 21079997 (Version 1)
Quarter: 2022Q3

REPORT INFORMATION
  Report Type: Spontaneous
  Country: US (occurrence: US)
  Receive Date: 20220714
  Receipt Date: 20220714
  Transmission Date: 20221026
  Serious: No
  Sender: FDA-Public Use
  Company Number: US-TEVA-2022-US-2051458

PATIENT
  Age: 14 Year
  Sex: Male

DRUGS (2)
  1. GUANFACINE [Suspect]
     Active Substance: GUANFACINE
     Indication: Attention deficit hyperactivity disorder
     Dosage: TABLETS - EXTENDED / SUSTAINED RELEASE
     Route: 065
     Dates: start: 20220201
  2. GUANFACINE [Suspect]
     Active Substance: GUANFACINE
     Indication: Anxiety

REACTIONS (7)
  - Abnormal behaviour [Recovered/Resolved]
  - Anger [Recovered/Resolved]
  - Anxiety [Recovered/Resolved]
  - Enuresis [Recovered/Resolved]
  - Drug ineffective [Unknown]
  - Emotional disorder [Recovered/Resolved]
  - Defaecation disorder [Recovered/Resolved]

NARRATIVE: CASE EVENT DATE: 20220101
